FAERS Safety Report 6822189-7 (Version None)
Quarter: 2010Q3

REPORT INFORMATION
  Report Type: 
  Country: None (occurrence: None)
  Receive Date: 20100702
  Receipt Date: 20100625
  Transmission Date: 20110219
  Serious: Yes (Other)
  Sender: FDA-Public Use
  Company Number: 2010SP036121

PATIENT
  Sex: Female

DRUGS (1)
  1. IMPLANON [Suspect]
     Indication: DRUG EXPOSURE VIA BREAST MILK
     Dosage: TRMA
     Route: 063
     Dates: start: 20080130

REACTIONS (3)
  - DRUG EXPOSURE VIA BREAST MILK [None]
  - PRECOCIOUS PUBERTY [None]
  - SKIN ODOUR ABNORMAL [None]
